FAERS Safety Report 9612774 (Version 1)
Quarter: 2013Q4

REPORT INFORMATION
  Report Type: Report from Study
  Country: PL (occurrence: PL)
  Receive Date: 20131010
  Receipt Date: 20131010
  Transmission Date: 20140711
  Serious: No
  Sender: FDA-Public Use
  Company Number: PHHY2013PL112805

PATIENT
  Age: 32 Year
  Sex: Male

DRUGS (1)
  1. AMN107 [Suspect]
     Dosage: 800 MG, UNK

REACTIONS (3)
  - Inappropriate schedule of drug administration [Unknown]
  - Memory impairment [Unknown]
  - Feeling abnormal [Unknown]
